FAERS Safety Report 15880853 (Version 1)
Quarter: 2019Q1

REPORT INFORMATION
  Report Type: Spontaneous
  Country: US (occurrence: US)
  Receive Date: 20190128
  Receipt Date: 20190128
  Transmission Date: 20190417
  Serious: Yes (Disabling)
  Sender: FDA-Public Use
  Company Number: None

PATIENT
  Age: 40 Year
  Sex: Male
  Weight: 112.5 kg

DRUGS (4)
  1. DULOXETINE. [Suspect]
     Active Substance: DULOXETINE
  2. OLANZAPINE. [Concomitant]
     Active Substance: OLANZAPINE
  3. SYNTHROID [Concomitant]
     Active Substance: LEVOTHYROXINE SODIUM
  4. TESTOSTERONE. [Concomitant]
     Active Substance: TESTOSTERONE

REACTIONS (4)
  - Affect lability [None]
  - Withdrawal syndrome [None]
  - Dizziness [None]
  - Paraesthesia [None]

NARRATIVE: CASE EVENT DATE: 20190125
